FAERS Safety Report 7098974-6 (Version None)
Quarter: 2010Q4

REPORT INFORMATION
  Report Type: 
  Country: None (occurrence: None)
  Receive Date: 20101112
  Receipt Date: 20101104
  Transmission Date: 20110411
  Serious: Yes (Death, Hospitalization)
  Sender: FDA-Public Use
  Company Number: US-AMGEN-USASP2010000724

PATIENT

DRUGS (8)
  1. NPLATE [Suspect]
     Indication: IDIOPATHIC THROMBOCYTOPENIC PURPURA
     Dosage: 0.18 A?G, UNK
     Dates: start: 20080919, end: 20080924
  2. CORTICOSTEROIDS [Concomitant]
  3. IMMU-G [Concomitant]
     Route: 042
  4. RITUXIMAB [Concomitant]
  5. CYCLOPHOSPHAMIDE [Concomitant]
     Dosage: UNK
     Dates: start: 20081021, end: 20090107
  6. ADRIAMYCIN PFS [Concomitant]
     Dosage: UNK
     Dates: start: 20081021, end: 20090107
  7. VINCRISTINE [Concomitant]
     Dosage: UNK
     Dates: start: 20081021, end: 20090107
  8. PREDNISOLONE [Concomitant]
     Dosage: UNK
     Dates: start: 20081021, end: 20090107

REACTIONS (9)
  - BACK PAIN [None]
  - COAGULOPATHY [None]
  - DIARRHOEA [None]
  - GASTROINTESTINAL HAEMORRHAGE [None]
  - NON-HODGKIN'S LYMPHOMA [None]
  - PANCYTOPENIA [None]
  - PNEUMONIA [None]
  - RESPIRATORY FAILURE [None]
  - SEPSIS [None]
